FAERS Safety Report 4884916-8 (Version None)
Quarter: 2006Q1

REPORT INFORMATION
  Report Type: 
  Country: None (occurrence: None)
  Receive Date: 20060117
  Receipt Date: 20060102
  Transmission Date: 20060701
  Serious: No
  Sender: FDA-Public Use
  Company Number: 2006AL000020

PATIENT
  Age: 74 Year
  Sex: Male

DRUGS (9)
  1. DILTIAZEM HYDROCHLORIDE [Suspect]
     Indication: ATRIAL FIBRILLATION
     Dosage: 120 MG; QID; PO
     Route: 048
  2. DILTIAZEM HCL [Suspect]
     Indication: ATRIAL FIBRILLATION
     Dosage: 5 MG; IV
     Route: 042
  3. DILTIAZEM HCL [Suspect]
     Indication: ATRIAL FIBRILLATION
     Dosage: 30 MG; QID; PO
     Route: 048
  4. AMIODARONE HCL [Suspect]
     Dosage: IV
     Route: 042
  5. CHLOROTHIAZIDE [Concomitant]
  6. SPIRONOLACTONE [Concomitant]
  7. ALLOPURINOL [Concomitant]
  8. ATORVASTATIN CALCIUM [Concomitant]
  9. FLUTICASONE W/SALMETEROL [Concomitant]

REACTIONS (8)
  - ABDOMINAL INFECTION [None]
  - BLOOD CULTURE POSITIVE [None]
  - CHRONIC OBSTRUCTIVE PULMONARY DISEASE [None]
  - CONDITION AGGRAVATED [None]
  - DIARRHOEA [None]
  - ENTEROCOCCAL INFECTION [None]
  - GASTROINTESTINAL HYPOMOTILITY [None]
  - NEUTROPENIA [None]
